FAERS Safety Report 19846626 (Version 1)
Quarter: 2021Q3

REPORT INFORMATION
  Report Type: Spontaneous
  Country: US (occurrence: US)
  Receive Date: 20210917
  Receipt Date: 20210917
  Transmission Date: 20211014
  Serious: Yes (Disabling)
  Sender: FDA-Public Use
  Company Number: None

PATIENT
  Age: 58 Year
  Sex: Female
  Weight: 207 kg

DRUGS (14)
  1. FUROSEMIDE. [Concomitant]
     Active Substance: FUROSEMIDE
  2. BIOTIN [Concomitant]
     Active Substance: BIOTIN
  3. ECOTRIN [Concomitant]
     Active Substance: ASPIRIN
  4. PACEMAKER [Concomitant]
     Active Substance: DEVICE
  5. MAXALT [Concomitant]
     Active Substance: RIZATRIPTAN BENZOATE
  6. CENTRUM SILVER [Concomitant]
     Active Substance: MINERALS\VITAMINS
  7. VITAMIN D3 [Concomitant]
     Active Substance: CHOLECALCIFEROL
  8. AJOVY [Suspect]
     Active Substance: FREMANEZUMAB-VFRM
     Indication: MIGRAINE
     Dosage: ?          OTHER FREQUENCY:MONTHLY;OTHER ROUTE:INJECTION?
     Dates: start: 20200110, end: 20210810
  9. CARTIA XT [Concomitant]
     Active Substance: DILTIAZEM HYDROCHLORIDE
  10. GLUCOSAMINE CHRONDROITIN [Concomitant]
  11. SYNTHROID [Concomitant]
     Active Substance: LEVOTHYROXINE SODIUM
  12. EMGALITY [Suspect]
     Active Substance: GALCANEZUMAB-GNLM
  13. BENICAR [Concomitant]
     Active Substance: OLMESARTAN MEDOXOMIL
  14. DIGOXIN. [Concomitant]
     Active Substance: DIGOXIN

REACTIONS (3)
  - Constipation [None]
  - Abdominal discomfort [None]
  - Alopecia [None]

NARRATIVE: CASE EVENT DATE: 20210917
